FAERS Safety Report 10605950 (Version 1)
Quarter: 2014Q4

REPORT INFORMATION
  Report Type: Spontaneous
  Country: US (occurrence: None)
  Receive Date: 20141121
  Receipt Date: 20141121
  Transmission Date: 20150529
  Serious: Yes (Hospitalization, Other)
  Sender: FDA-Public Use
  Company Number: LH201400434

PATIENT
  Age: 27 Year
  Sex: Female

DRUGS (1)
  1. MAKENA [Suspect]
     Active Substance: HYDROXYPROGESTERONE CAPROATE
     Indication: PREMATURE DELIVERY
     Dosage: ONCE WEEKLY
     Route: 030
     Dates: start: 20140727, end: 201410

REACTIONS (8)
  - Infection [None]
  - Premature rupture of membranes [None]
  - Maternal exposure during pregnancy [None]
  - Uterine contractions during pregnancy [None]
  - Cervix disorder [None]
  - Pyrexia [None]
  - Premature labour [None]
  - Caesarean section [None]

NARRATIVE: CASE EVENT DATE: 20141014
